FAERS Safety Report 10039583 (Version 1)
Quarter: 2014Q1

REPORT INFORMATION
  Report Type: Spontaneous
  Country: US (occurrence: US)
  Receive Date: 20140326
  Receipt Date: 20140326
  Transmission Date: 20141002
  Serious: Yes (Other)
  Sender: FDA-Public Use
  Company Number: CHPA2014US004365

PATIENT
  Sex: Female

DRUGS (1)
  1. PREVACID 24HR 15MG [Suspect]
     Route: 048

REACTIONS (1)
  - Pharyngitis [Recovering/Resolving]
